FAERS Safety Report 5398615-X (Version None)
Quarter: 2007Q3

REPORT INFORMATION
  Report Type: 
  Country: None (occurrence: None)
  Receive Date: 20070726
  Receipt Date: 20060605
  Transmission Date: 20080115
  Serious: No
  Sender: FDA-Public Use
  Company Number: US-AMGEN-KDL182124

PATIENT
  Sex: Female

DRUGS (12)
  1. PROCRIT [Suspect]
     Indication: RENAL FAILURE CHRONIC
     Route: 058
     Dates: start: 20040101
  2. NEORAL [Concomitant]
  3. PREDNISONE TAB [Concomitant]
  4. IMURAN [Concomitant]
  5. DIOVAN [Concomitant]
  6. CARDIZEM [Concomitant]
  7. AXID [Concomitant]
  8. NOVALOG INSULIN [Concomitant]
  9. LANTUS [Concomitant]
  10. FUROSEMIDE [Concomitant]
  11. IRON SULFATETHIAMIN COMPOUND TAB [Concomitant]
  12. VITAMIN D [Concomitant]

REACTIONS (1)
  - THERAPEUTIC RESPONSE DECREASED [None]
